FAERS Safety Report 16925572 (Version 1)
Quarter: 2019Q4

REPORT INFORMATION
  Report Type: Spontaneous
  Country: US (occurrence: US)
  Receive Date: 20191016
  Receipt Date: 20191016
  Transmission Date: 20200122
  Serious: Yes (Death)
  Sender: FDA-Public Use
  Company Number: None

PATIENT
  Age: 64 Year
  Sex: Female
  Weight: 61.69 kg

DRUGS (2)
  1. XGEVA [Suspect]
     Active Substance: DENOSUMAB
     Indication: BONE CANCER
     Dosage: 120 MG SUBCUTANEOUS ONCE Q 28 DAYS
     Route: 058
     Dates: start: 20190607
  2. XGEVA [Suspect]
     Active Substance: DENOSUMAB
     Indication: RECTAL CANCER
     Dosage: 120 MG SUBCUTANEOUS ONCE Q 28 DAYS
     Route: 058
     Dates: start: 20190607

REACTIONS (1)
  - Death [None]
